FAERS Safety Report 6124080-0 (Version None)
Quarter: 2009Q1

REPORT INFORMATION
  Report Type: 
  Country: None (occurrence: None)
  Receive Date: 20090317
  Receipt Date: 20090311
  Transmission Date: 20090719
  Serious: Yes (Hospitalization)
  Sender: FDA-Public Use
  Company Number: 2009SP004359

PATIENT
  Age: 50 Year
  Sex: Male
  Weight: 76 kg

DRUGS (5)
  1. PEG-INTRON [Suspect]
     Indication: HEPATITIS C
     Dosage: ; SC, 120 MCG; QW; SC
     Route: 058
     Dates: start: 20090207, end: 20090208
  2. REBETOL [Suspect]
     Indication: HEPATITIS C
     Dosage: ; PO, 800 MG; QD; PO
     Route: 048
     Dates: start: 20090207, end: 20090212
  3. ZETIA [Suspect]
     Indication: HYPERLIPIDAEMIA
     Dosage: ; PO
     Route: 048
     Dates: start: 20080901, end: 20090212
  4. NOVORAPID [Concomitant]
  5. LEVEMIR [Concomitant]

REACTIONS (4)
  - CONDITION AGGRAVATED [None]
  - DEPRESSIVE SYMPTOM [None]
  - DRUG INTERACTION [None]
  - JAUNDICE [None]
